FAERS Safety Report 22351424 (Version 1)
Quarter: 2023Q2

REPORT INFORMATION
  Report Type: Report from Study
  Country: BR (occurrence: BR)
  Receive Date: 20230522
  Receipt Date: 20230522
  Transmission Date: 20230721
  Serious: Yes (Other)
  Sender: FDA-Public Use
  Company Number: BR-UCBSA-2023025675

PATIENT
  Sex: Male

DRUGS (3)
  1. KEPPRA [Suspect]
     Active Substance: LEVETIRACETAM
     Indication: Epilepsy
     Dosage: 1500 MILLIGRAM, ONCE DAILY (QD)
     Route: 048
     Dates: start: 20200403
  2. KEPPRA [Suspect]
     Active Substance: LEVETIRACETAM
     Dosage: 500 MG IN THE MORNING, 500 MG IN THE AFTERNOON AND 1000 AT NIGHT
     Route: 048
  3. KEPPRA XR [Suspect]
     Active Substance: LEVETIRACETAM
     Indication: Epilepsy
     Dosage: 500 MG TAKE 4 TABLETS A DAY
     Route: 048
     Dates: start: 20200403

REACTIONS (10)
  - Epilepsy [Unknown]
  - Loss of consciousness [Unknown]
  - Agitation [Unknown]
  - Nausea [Unknown]
  - Amnesia [Unknown]
  - Product prescribing issue [Unknown]
  - Off label use [Unknown]
  - Impaired driving ability [Unknown]
  - Inability to afford medication [Unknown]
  - Product substitution issue [Unknown]

NARRATIVE: CASE EVENT DATE: 20200101
